FAERS Safety Report 6931436-2 (Version None)
Quarter: 2010Q3

REPORT INFORMATION
  Report Type: 
  Country: None (occurrence: None)
  Receive Date: 20100816
  Receipt Date: 20100802
  Transmission Date: 20110219
  Serious: Yes (Other)
  Sender: FDA-Public Use
  Company Number: VAL_00451_2010

PATIENT
  Age: 81 Year
  Sex: Male

DRUGS (1)
  1. CALCITRIOL [Suspect]
     Indication: PRODUCT USED FOR UNKNOWN INDICATION
     Dosage: DF

REACTIONS (5)
  - BLOOD CREATININE INCREASED [None]
  - HYPERCALCAEMIA [None]
  - NEPHROSCLEROSIS [None]
  - POSITRON EMISSION TOMOGRAM ABNORMAL [None]
  - RENAL INJURY [None]
